FAERS Safety Report 17029341 (Version 2)
Quarter: 2019Q4

REPORT INFORMATION
  Report Type: Spontaneous
  Country: US (occurrence: US)
  Receive Date: 20191114
  Receipt Date: 20191127
  Transmission Date: 20200122
  Serious: Yes (Death)
  Sender: FDA-Public Use
  Company Number: US-KARYOPHARM-2019KPT000721

PATIENT

DRUGS (2)
  1. XPOVIO [Suspect]
     Active Substance: SELINEXOR
     Indication: PLASMA CELL MYELOMA
     Dosage: 80 MG
     Route: 048
     Dates: start: 20191007
  2. XPOVIO [Suspect]
     Active Substance: SELINEXOR
     Dosage: 100 MG, WEEKLY

REACTIONS (5)
  - Thrombocytopenia [Recovered/Resolved]
  - Asthenia [Recovering/Resolving]
  - Hyperkalaemia [Recovering/Resolving]
  - Decreased appetite [Unknown]
  - Death [Fatal]
